FAERS Safety Report 20417446 (Version 1)
Quarter: 2022Q1

REPORT INFORMATION
  Report Type: Spontaneous
  Country: CN (occurrence: CN)
  Receive Date: 20220202
  Receipt Date: 20220202
  Transmission Date: 20220423
  Serious: Yes (Other)
  Sender: FDA-Public Use
  Company Number: CN-PFIZER INC-202200123673

PATIENT
  Age: 14 Year
  Sex: Female
  Weight: 70 kg

DRUGS (2)
  1. AZITHROMYCIN [Suspect]
     Active Substance: AZITHROMYCIN
     Indication: Tonsillitis bacterial
     Dosage: 0.5 G, 1X/DAY (QD)
     Route: 041
     Dates: start: 20211207, end: 20211208
  2. SODIUM CHLORIDE [Concomitant]
     Active Substance: SODIUM CHLORIDE
     Indication: Tonsillitis bacterial
     Dosage: 100 ML, 1X/DAY
     Route: 041
     Dates: start: 20211207, end: 20211208

REACTIONS (4)
  - Rash erythematous [Recovered/Resolved]
  - Flushing [Unknown]
  - Drug hypersensitivity [Unknown]
  - Off label use [Unknown]

NARRATIVE: CASE EVENT DATE: 20211207
